FAERS Safety Report 5463380-4 (Version None)
Quarter: 2007Q3

REPORT INFORMATION
  Report Type: 
  Country: None (occurrence: None)
  Receive Date: 20070920
  Receipt Date: 20070913
  Transmission Date: 20080115
  Serious: Yes (Other)
  Sender: FDA-Public Use
  Company Number: IE-SANOFI-SYNTHELABO-A01200710397

PATIENT

DRUGS (1)
  1. ELOXATIN [Suspect]
     Route: 065

REACTIONS (1)
  - GRAND MAL CONVULSION [None]
